FAERS Safety Report 9654830 (Version 2)
Quarter: 2013Q4

REPORT INFORMATION
  Report Type: Spontaneous
  Country: US (occurrence: US)
  Receive Date: 20131029
  Receipt Date: 20131029
  Transmission Date: 20140711
  Serious: Yes (Other)
  Sender: FDA-Public Use
  Company Number: US-NAPPMUNDI-USA-2011-0068973

PATIENT
  Age: 17 Year
  Sex: Male

DRUGS (2)
  1. OXYCONTIN TABLETS [Suspect]
     Indication: DRUG ABUSE
     Dosage: UNKNOWN
  2. OXYCONTIN TABLETS [Suspect]
     Indication: LIGAMENT SPRAIN

REACTIONS (3)
  - Drug dependence [Recovered/Resolved]
  - Drug abuse [Unknown]
  - Feeling abnormal [Unknown]
